FAERS Safety Report 9552619 (Version 1)
Quarter: 2013Q3

REPORT INFORMATION
  Report Type: Spontaneous
  Country: US (occurrence: None)
  Receive Date: 20130802
  Receipt Date: 20130802
  Transmission Date: 20140515
  Serious: Yes (Hospitalization)
  Sender: FDA-Public Use
  Company Number: OPER20110306

PATIENT
  Sex: Female

DRUGS (2)
  1. OPANA ER [Suspect]
     Indication: PRODUCT USED FOR UNKNOWN INDICATION
     Dosage: 7 IN 1 D
     Route: 048
  2. OXYCONTIN (OXYCODONE HYDROCHLORIDE)(80 MILLIGRAM TABLETS) (OXYCODONE HYDROCHLORIDE) [Concomitant]

REACTIONS (3)
  - Drug withdrawal syndrome [None]
  - Drug screen positive [None]
  - Drug ineffective [None]
